FAERS Safety Report 6828421-8 (Version None)
Quarter: 2010Q3

REPORT INFORMATION
  Report Type: 
  Country: None (occurrence: None)
  Receive Date: 20100708
  Receipt Date: 20100708
  Transmission Date: 20110219
  Serious: Yes (Other)
  Sender: FDA-Public Use
  Company Number: None

PATIENT
  Age: 85 Year
  Sex: Male

DRUGS (1)
  1. TASIGNA [Suspect]
     Indication: CHRONIC MYELOID LEUKAEMIA

REACTIONS (4)
  - ABDOMINAL DISCOMFORT [None]
  - ASTHENIA [None]
  - MUSCLE SPASMS [None]
  - PAIN [None]
